FAERS Safety Report 11062606 (Version 1)
Quarter: 2015Q2

REPORT INFORMATION
  Report Type: Spontaneous
  Country: IR (occurrence: IR)
  Receive Date: 20150424
  Receipt Date: 20150424
  Transmission Date: 20150821
  Serious: Yes (Other)
  Sender: FDA-Public Use
  Company Number: PHHY2015IR047245

PATIENT
  Age: 13 Year
  Sex: Female

DRUGS (1)
  1. GEMFIBROZIL. [Suspect]
     Active Substance: GEMFIBROZIL
     Indication: FAMILIAL HYPERTRIGLYCERIDAEMIA
     Route: 065

REACTIONS (2)
  - Dermatitis bullous [Recovered/Resolved]
  - Blister [Recovered/Resolved]
